FAERS Safety Report 14987473 (Version 8)
Quarter: 2022Q3

REPORT INFORMATION
  Report Type: Spontaneous
  Country: US (occurrence: None)
  Receive Date: 20180608
  Receipt Date: 20220928
  Transmission Date: 20221027
  Serious: Yes (Death, Other)
  Sender: FDA-Public Use
  Company Number: US-ROCHE-2134662

PATIENT
  Age: 58 Year
  Sex: Female

DRUGS (12)
  1. OCREVUS [Suspect]
     Active Substance: OCRELIZUMAB
     Indication: Multiple sclerosis
     Route: 042
     Dates: start: 20170705
  2. OCREVUS [Suspect]
     Active Substance: OCRELIZUMAB
     Route: 042
     Dates: start: 20170727
  3. OCREVUS [Suspect]
     Active Substance: OCRELIZUMAB
     Route: 042
     Dates: start: 20180118
  4. XANAX [Concomitant]
     Active Substance: ALPRAZOLAM
  5. PROZAC [Concomitant]
     Active Substance: FLUOXETINE HYDROCHLORIDE
  6. GABAPENTIN [Concomitant]
     Active Substance: GABAPENTIN
  7. REMERON [Concomitant]
     Active Substance: MIRTAZAPINE
  8. NORTRIPTYLINE [Concomitant]
     Active Substance: NORTRIPTYLINE
  9. SEROQUEL [Concomitant]
     Active Substance: QUETIAPINE FUMARATE
  10. RESTORIL [Concomitant]
     Active Substance: TEMAZEPAM
     Dosage: PM
  11. TOPAMAX [Concomitant]
     Active Substance: TOPIRAMATE
  12. TRAMADOL [Concomitant]
     Active Substance: TRAMADOL

REACTIONS (5)
  - Respiratory distress [Fatal]
  - Chest discomfort [Unknown]
  - Chest pain [Unknown]
  - Pneumonia [Unknown]
  - Cough [Recovered/Resolved]

NARRATIVE: CASE EVENT DATE: 20171228
